FAERS Safety Report 16634390 (Version 4)
Quarter: 2020Q2

REPORT INFORMATION
  Report Type: Report from Study
  Country: None (occurrence: US)
  Receive Date: 20190726
  Receipt Date: 20200511
  Transmission Date: 20200713
  Serious: Yes (Hospitalization, Other)
  Sender: FDA-Public Use
  Company Number: US-ABBVIE-19K-163-2813643-00

PATIENT
  Age: 79 Year
  Sex: Female
  Weight: 54.48 kg

DRUGS (5)
  1. HUMIRA [Suspect]
     Active Substance: ADALIMUMAB
     Indication: CROHN^S DISEASE
     Route: 058
     Dates: start: 20190506, end: 2019
  2. HUMIRA [Suspect]
     Active Substance: ADALIMUMAB
     Route: 058
     Dates: start: 2019
  3. TYLENOL [Concomitant]
     Active Substance: ACETAMINOPHEN
     Indication: PRODUCT USED FOR UNKNOWN INDICATION
  4. IRON [Concomitant]
     Active Substance: IRON
     Indication: PRODUCT USED FOR UNKNOWN INDICATION
  5. CALCIUM [Concomitant]
     Active Substance: CALCIUM
     Indication: PRODUCT USED FOR UNKNOWN INDICATION

REACTIONS (13)
  - Weight decreased [Unknown]
  - Rash erythematous [Recovering/Resolving]
  - Vomiting [Not Recovered/Not Resolved]
  - Large intestinal obstruction [Recovered/Resolved]
  - Nausea [Not Recovered/Not Resolved]
  - Incorrect dose administered [Unknown]
  - Diarrhoea haemorrhagic [Recovering/Resolving]
  - Decreased appetite [Unknown]
  - Fatigue [Unknown]
  - Rash pruritic [Recovering/Resolving]
  - Myalgia [Unknown]
  - Injection site extravasation [Unknown]
  - Abdominal pain upper [Recovering/Resolving]

NARRATIVE: CASE EVENT DATE: 2019
